FAERS Safety Report 4293744-6 (Version None)
Quarter: 2004Q1

REPORT INFORMATION
  Report Type: 
  Country: None (occurrence: None)
  Receive Date: 20040212
  Receipt Date: 20040202
  Transmission Date: 20041129
  Serious: Yes (Life-Threatening, Hospitalization)
  Sender: FDA-Public Use
  Company Number: GB-GLAXOSMITHKLINE-B0321947A

PATIENT
  Age: 65 Year
  Sex: Female

DRUGS (6)
  1. ZOFRAN [Suspect]
     Indication: NAUSEA
     Dosage: 4MG UNKNOWN
     Route: 042
     Dates: start: 20031220, end: 20031221
  2. PREDNISOLONE [Concomitant]
     Dosage: 5MG PER DAY
     Route: 048
  3. FERROUS SULFATE TAB [Concomitant]
     Dosage: 200MG PER DAY
     Route: 048
  4. PARACETAMOL [Concomitant]
     Dosage: 1G PER DAY
     Route: 048
  5. METHOTREXATE [Concomitant]
     Dosage: 10MG PER DAY
     Route: 048
  6. SULPHASALAZINE [Concomitant]
     Dosage: 50MG PER DAY
     Route: 048

REACTIONS (4)
  - BRUXISM [None]
  - CONVULSION [None]
  - RASH [None]
  - RESPIRATORY ARREST [None]
